FAERS Safety Report 5620095-7 (Version None)
Quarter: 2008Q1

REPORT INFORMATION
  Report Type: 
  Country: None (occurrence: None)
  Receive Date: 20080208
  Receipt Date: 20080205
  Transmission Date: 20080703
  Serious: Yes (Life-Threatening, Hospitalization, Disabling, Other)
  Sender: FDA-Public Use
  Company Number: US-MERCK-0802USA01084

PATIENT
  Age: 53 Year
  Sex: Male

DRUGS (3)
  1. ISENTRESS [Suspect]
     Indication: HIV INFECTION
     Route: 048
  2. LEXIVA [Concomitant]
     Route: 065
  3. VIREAD [Concomitant]
     Route: 065

REACTIONS (1)
  - LEUKAEMIA [None]
